FAERS Safety Report 21848304 (Version 5)
Quarter: 2024Q1

REPORT INFORMATION
  Report Type: Spontaneous
  Country: US (occurrence: US)
  Receive Date: 20230111
  Receipt Date: 20240124
  Transmission Date: 20240409
  Serious: No
  Sender: FDA-Public Use
  Company Number: US-PFIZER INC-202200931786

PATIENT
  Age: 14 Year
  Sex: Male
  Weight: 45.7 kg

DRUGS (3)
  1. GENOTROPIN [Suspect]
     Active Substance: SOMATROPIN
     Indication: Short stature
     Dosage: 1.4 MG, DAILY
     Route: 058
     Dates: start: 20150817
  2. GENOTROPIN [Suspect]
     Active Substance: SOMATROPIN
     Indication: Floating-Harbor syndrome
  3. ANASTROZOLE [Concomitant]
     Active Substance: ANASTROZOLE
     Indication: Short stature
     Dosage: 1 MG, DAILY
     Route: 048
     Dates: start: 202104

REACTIONS (5)
  - Wrong technique in device usage process [Unknown]
  - Device breakage [Unknown]
  - Device mechanical issue [Unknown]
  - Poor quality device used [Unknown]
  - Device power source issue [Unknown]

NARRATIVE: CASE EVENT DATE: 20220701
